FAERS Safety Report 19060587 (Version 6)
Quarter: 2021Q2

REPORT INFORMATION
  Report Type: Report from Study
  Country: None (occurrence: CH)
  Receive Date: 20210326
  Receipt Date: 20210511
  Transmission Date: 20210717
  Serious: Yes (Death, Hospitalization, Other)
  Sender: FDA-Public Use
  Company Number: CH-ABBVIE-21K-151-3830660-00

PATIENT
  Age: 64 Year
  Sex: Male
  Weight: 96 kg

DRUGS (14)
  1. AMOXICILLIN + CLAVULANIC ACID [Concomitant]
     Active Substance: AMOXICILLIN\CLAVULANIC ACID
     Indication: PROPHYLAXIS
     Dosage: EVERY 8 H
     Route: 042
     Dates: start: 20210322, end: 20210324
  2. ESOMEPRAZOL [Concomitant]
     Active Substance: ESOMEPRAZOLE
     Indication: GASTROINTESTINAL DISORDER THERAPY
     Dosage: 1 IN THE MORNING
     Route: 048
     Dates: end: 20210323
  3. DUODOPA [Suspect]
     Active Substance: CARBIDOPA\LEVODOPA
     Dosage: MD: 5 ML, CRD: 5.7 ML/H, CRN: 0 ML/H, ED: 0.3 ML?20 MG/ML 5 MG/ML
     Route: 050
     Dates: start: 20210114, end: 202103
  4. LEPONEX [Concomitant]
     Active Substance: CLOZAPINE
     Indication: PARKINSON^S DISEASE
     Dosage: 1 IN THE EVENING
     Route: 048
     Dates: end: 20210324
  5. NEUPRO [Concomitant]
     Active Substance: ROTIGOTINE
     Indication: PARKINSON^S DISEASE
     Dosage: EVERY 24 H
     Dates: end: 20210325
  6. CIRCADIN RETARD [Concomitant]
     Indication: SLEEP DISORDER
     Dosage: 1 IN THE EVENING
     Route: 048
     Dates: end: 20210323
  7. LEPONEX [Concomitant]
     Active Substance: CLOZAPINE
     Indication: PARKINSON^S DISEASE
     Dosage: 1 AT NIGHT
     Route: 048
     Dates: end: 20210324
  8. PARACETAMOL [Concomitant]
     Active Substance: ACETAMINOPHEN
     Indication: PAIN
     Dosage: MORNING, LUNCH, EVENING, NIGHT
     Route: 042
     Dates: start: 20210322, end: 20210324
  9. QUETIAPIN [Concomitant]
     Active Substance: QUETIAPINE
     Indication: AGITATION
     Dosage: 1 IN THE EVENING
     Route: 048
     Dates: start: 20210322, end: 20210324
  10. DUODOPA [Suspect]
     Active Substance: CARBIDOPA\LEVODOPA
     Indication: PARKINSON^S DISEASE
     Dosage: MD: 5 ML, CRD: 5.8 ML/H, CRN: 0 ML/H, ED: 1 ML
     Route: 050
     Dates: start: 20210111, end: 20210114
  11. PARACETAMOL [Concomitant]
     Active Substance: ACETAMINOPHEN
     Indication: FLAIL CHEST
  12. HYDROMORPHON [Concomitant]
     Active Substance: HYDROMORPHONE
     Indication: PAIN
     Dosage: IF NECESSARY
     Route: 042
     Dates: start: 20210322, end: 20210325
  13. HYDROMORPHON [Concomitant]
     Active Substance: HYDROMORPHONE
     Indication: DYSPNOEA
  14. TRIMETHOPRIM SULFAMETHOXAZOLE [Concomitant]
     Active Substance: SULFAMETHOXAZOLE\TRIMETHOPRIM
     Indication: PROPHYLAXIS
     Dosage: 160/800?MO?WED?FR
     Route: 048
     Dates: end: 20210323

REACTIONS (7)
  - Cardiac arrest [Fatal]
  - Sinus node dysfunction [Fatal]
  - Sinus arrest [Fatal]
  - Rib fracture [Unknown]
  - Condition aggravated [Unknown]
  - Carotid artery stenosis [Unknown]
  - Resuscitation [Unknown]

NARRATIVE: CASE EVENT DATE: 20210322
